FAERS Safety Report 7177316-1 (Version None)
Quarter: 2010Q4

REPORT INFORMATION
  Report Type: 
  Country: None (occurrence: None)
  Receive Date: 20101220
  Receipt Date: 20101208
  Transmission Date: 20110411
  Serious: Yes (Hospitalization)
  Sender: FDA-Public Use
  Company Number: JP-CELGENEUS-087-21880-10101930

PATIENT
  Sex: Female

DRUGS (4)
  1. REVLIMID [Suspect]
     Indication: MULTIPLE MYELOMA
     Route: 048
     Dates: start: 20100921, end: 20101011
  2. LENADEX [Suspect]
     Indication: MULTIPLE MYELOMA
     Route: 048
     Dates: start: 20100922, end: 20101008
  3. TAKEPRON [Concomitant]
     Indication: PROPHYLAXIS
     Route: 048
     Dates: start: 20100921
  4. WARFARIN SODIUM [Concomitant]
     Indication: PROPHYLAXIS
     Route: 048
     Dates: start: 20100921

REACTIONS (3)
  - CONSTIPATION [None]
  - INFECTION [None]
  - LIVER DISORDER [None]
